FAERS Safety Report 18322621 (Version 1)
Quarter: 2020Q3

REPORT INFORMATION
  Report Type: Spontaneous
  Country: NO (occurrence: NO)
  Receive Date: 20200928
  Receipt Date: 20200928
  Transmission Date: 20201103
  Serious: Yes (Hospitalization, Other)
  Sender: FDA-Public Use
  Company Number: NO-BAUSCH-BL-2020-027270

PATIENT
  Age: 37 Year
  Sex: Male
  Weight: 116 kg

DRUGS (10)
  1. HYDROCORTISONE. [Suspect]
     Active Substance: HYDROCORTISONE
     Indication: DERMATITIS ATOPIC
     Dosage: UNKNOWN
     Route: 065
     Dates: start: 20190319, end: 20190423
  2. CANODERM [Concomitant]
     Active Substance: UREA
     Indication: PRODUCT USED FOR UNKNOWN INDICATION
     Dosage: BID (TWICE A DAY)
     Route: 061
     Dates: start: 20190210
  3. MOMETASONE FUROATE. [Suspect]
     Active Substance: MOMETASONE FUROATE
     Indication: DERMATITIS ATOPIC
     Dosage: UNKNOWN
     Route: 061
     Dates: start: 20190403, end: 20190423
  4. CLOBETASOL PROPIONATE. [Suspect]
     Active Substance: CLOBETASOL PROPIONATE
     Indication: DERMATITIS ATOPIC
     Dosage: UNKNOWN
     Route: 061
     Dates: start: 20190319, end: 20190402
  5. HYDROCORTISONE. [Suspect]
     Active Substance: HYDROCORTISONE
     Dosage: UNKNOWN
     Route: 061
     Dates: start: 20190313, end: 20190318
  6. MOMETASONE FUROATE. [Suspect]
     Active Substance: MOMETASONE FUROATE
     Dosage: UNKNOWN
     Route: 061
     Dates: start: 20190219, end: 20190312
  7. BASIRON [Concomitant]
     Indication: ACNE
     Dosage: BID (TWICE A DAY)
     Route: 061
     Dates: start: 20190709
  8. HYDROCORTISONE. [Suspect]
     Active Substance: HYDROCORTISONE
     Dosage: UNKNOWN
     Route: 061
     Dates: start: 20190219, end: 20190318
  9. CETIRIZINE [Concomitant]
     Active Substance: CETIRIZINE HYDROCHLORIDE
     Indication: RHINITIS ALLERGIC
     Dosage: 20 MG, BID(TWICE A DAY)
     Route: 048
     Dates: start: 20180210
  10. MOMETASONE FUROATE. [Suspect]
     Active Substance: MOMETASONE FUROATE
     Dosage: UNKNOWN
     Route: 061
     Dates: start: 20190514, end: 20190614

REACTIONS (2)
  - Bursitis infective [Recovered/Resolved]
  - Joint abscess [Recovered/Resolved]

NARRATIVE: CASE EVENT DATE: 20200221
